FAERS Safety Report 4541701-4 (Version None)
Quarter: 2004Q4

REPORT INFORMATION
  Report Type: 
  Country: None (occurrence: None)
  Receive Date: 20041227
  Receipt Date: 20041214
  Transmission Date: 20050328
  Serious: Yes (Hospitalization)
  Sender: FDA-Public Use
  Company Number: 2004AP06333

PATIENT
  Age: 66 Year
  Sex: Male

DRUGS (1)
  1. XYLOCAINE [Suspect]
     Indication: ANAESTHESIA
     Dates: start: 20041129, end: 20041129

REACTIONS (2)
  - PYREXIA [None]
  - THROAT IRRITATION [None]
